FAERS Safety Report 17858934 (Version 1)
Quarter: 2020Q2

REPORT INFORMATION
  Report Type: Spontaneous
  Country: US (occurrence: US)
  Receive Date: 20200603
  Receipt Date: 20200603
  Transmission Date: 20200714
  Serious: No
  Sender: FDA-Public Use
  Company Number: None

PATIENT
  Age: 69 Year
  Sex: Male
  Weight: 76.8 kg

DRUGS (16)
  1. ACETAMINOPHEN. [Concomitant]
     Active Substance: ACETAMINOPHEN
     Dates: start: 20200601
  2. ALBUTEROL (PROVENTIL) NEBULIZER SOLUTION [Concomitant]
     Dates: start: 20200601
  3. HEPARIN, PORCINE INJECTION 7,500 UNITS SUBQ TID [Concomitant]
     Dates: start: 20200601
  4. IPRATROPIUM-ALBUTEROL (COMBIVENT) INHALER [Concomitant]
     Dates: start: 20200602
  5. QUETIAPINE (SEROQUEL) TABLET 200 MG [Concomitant]
     Dates: start: 20200602
  6. REMDESIVIR. [Suspect]
     Active Substance: REMDESIVIR
     Indication: COVID-19
     Dosage: ?          OTHER FREQUENCY:ONCE;?
     Route: 042
     Dates: start: 20200602, end: 20200602
  7. CEFTRIAXONE (ROCEPHIN) 1 G IN NS IVPB ? [Concomitant]
     Dates: start: 20200602
  8. NS [Concomitant]
     Active Substance: SODIUM CHLORIDE
     Dates: start: 20200601
  9. PRAVASTATIN. [Concomitant]
     Active Substance: PRAVASTATIN
     Dates: start: 20200602
  10. AZITHROMYCIN (ZITHROMAX) 500 MG IN NS IVPB ? [Concomitant]
     Dates: start: 20200602
  11. METHYLPREDNISOLONE *PF* (SOLU-MEDROL) INJECTION 40 MG [Concomitant]
     Dates: start: 20200602
  12. IOHEXOL (OMNIPAQUE) 350 MG IODINE/ML INJECTION [Concomitant]
     Dates: start: 20200601, end: 20200601
  13. MORPHINE INJECTION [Concomitant]
     Active Substance: MORPHINE
     Dates: start: 20200601
  14. ONDANSETRON [Concomitant]
     Active Substance: ONDANSETRON
     Dates: start: 20200601
  15. BENZONATATE (TESSALON) CAPSULE [Concomitant]
     Dates: start: 20200601
  16. THIAMINE 100MG TABLET [Concomitant]
     Dates: start: 20200602

REACTIONS (6)
  - Hyperhidrosis [None]
  - Blood pressure decreased [None]
  - Tremor [None]
  - Chills [None]
  - Heart rate decreased [None]
  - Infusion related reaction [None]

NARRATIVE: CASE EVENT DATE: 20200602
